FAERS Safety Report 6825603-6 (Version None)
Quarter: 2010Q3

REPORT INFORMATION
  Report Type: 
  Country: None (occurrence: None)
  Receive Date: 20100708
  Receipt Date: 20090610
  Transmission Date: 20110219
  Serious: No
  Sender: FDA-Public Use
  Company Number: US-PFIZER INC-2006153974

PATIENT
  Sex: Male
  Weight: 70.748 kg

DRUGS (4)
  1. CHANTIX [Suspect]
     Indication: SMOKING CESSATION THERAPY
     Route: 048
     Dates: start: 20061101
  2. ACETYLSALICYLIC ACID [Concomitant]
  3. TRELSTAR [Concomitant]
     Indication: PROSTATE CANCER
     Dosage: UNK
  4. MEGESTROL [Concomitant]

REACTIONS (6)
  - ABDOMINAL DISCOMFORT [None]
  - ABNORMAL DREAMS [None]
  - CHILLS [None]
  - DIZZINESS [None]
  - NAUSEA [None]
  - NERVOUSNESS [None]
